FAERS Safety Report 12978675 (Version 1)
Quarter: 2016Q4

REPORT INFORMATION
  Report Type: Spontaneous
  Country: US (occurrence: US)
  Receive Date: 20161128
  Receipt Date: 20161128
  Transmission Date: 20170207
  Serious: No
  Sender: FDA-Public Use
  Company Number: US-PFIZER INC-2016547716

PATIENT
  Sex: Female

DRUGS (6)
  1. FELDENE [Suspect]
     Active Substance: PIROXICAM
     Dosage: UNK
  2. ASA [Suspect]
     Active Substance: ASPIRIN
     Dosage: UNK
  3. INDOCIN [Suspect]
     Active Substance: INDOMETHACIN
     Dosage: UNK
  4. NAPROSYN [Suspect]
     Active Substance: NAPROXEN
     Dosage: UNK
  5. CLINORIL [Suspect]
     Active Substance: SULINDAC
     Dosage: UNK
  6. VOLTAREN [Suspect]
     Active Substance: DICLOFENAC SODIUM
     Dosage: UNK

REACTIONS (2)
  - Drug hypersensitivity [Unknown]
  - Abdominal discomfort [Unknown]
